FAERS Safety Report 21914723 (Version 1)
Quarter: 2023Q1

REPORT INFORMATION
  Report Type: Report from Study
  Country: CA (occurrence: CA)
  Receive Date: 20230126
  Receipt Date: 20230126
  Transmission Date: 20230418
  Serious: Yes (Other)
  Sender: FDA-Public Use
  Company Number: CA-ABBVIE-4281969

PATIENT
  Age: 28 Year
  Sex: Female

DRUGS (1)
  1. SKYRIZI [Suspect]
     Active Substance: RISANKIZUMAB-RZAA
     Indication: Hidradenitis
     Route: 058
     Dates: start: 20210421

REACTIONS (4)
  - Debridement [Unknown]
  - Gait disturbance [Unknown]
  - Pain [Not Recovered/Not Resolved]
  - Procedural site reaction [Unknown]

NARRATIVE: CASE EVENT DATE: 20220116
